FAERS Safety Report 9174735 (Version 1)
Quarter: 2013Q1

REPORT INFORMATION
  Report Type: Spontaneous
  Country: JP (occurrence: JP)
  Receive Date: 20130320
  Receipt Date: 20130320
  Transmission Date: 20140127
  Serious: Yes (Other)
  Sender: FDA-Public Use
  Company Number: JP-PFIZER INC-2013087533

PATIENT
  Age: 56 Year
  Sex: Female

DRUGS (2)
  1. CISPLATIN [Suspect]
     Indication: ADENOID CYSTIC CARCINOMA
     Dosage: 5 MG/M2/DAY, (TOTAL, 240 MG)
     Route: 013
  2. DOCETAXEL [Suspect]
     Indication: ADENOID CYSTIC CARCINOMA
     Dosage: 15 MG/M2, WEEKLY (TOTAL, 148 MG)
     Route: 013

REACTIONS (3)
  - Mucosal inflammation [Recovering/Resolving]
  - Neutropenia [Recovering/Resolving]
  - Decreased appetite [Recovering/Resolving]
